FAERS Safety Report 7070565-2 (Version None)
Quarter: 2010Q4

REPORT INFORMATION
  Report Type: 
  Country: None (occurrence: None)
  Receive Date: 20101029
  Receipt Date: 20101020
  Transmission Date: 20110411
  Serious: Yes (Other)
  Sender: FDA-Public Use
  Company Number: GB-PFIZER INC-2010001083

PATIENT
  Age: 50 Year
  Sex: Female

DRUGS (3)
  1. EPIRUBICIN HYDROCHLORIDE [Suspect]
     Indication: BREAST CANCER
  2. ABIRATERONE ACETATE [Suspect]
     Indication: BREAST CANCER
     Dosage: 1000 MG/DAY
     Route: 048
     Dates: start: 20091022, end: 20091118
  3. ABIRATERONE ACETATE [Suspect]
     Dosage: 1000 MG, UNK
     Route: 048
     Dates: start: 20091119, end: 20091123

REACTIONS (3)
  - DIZZINESS EXERTIONAL [None]
  - HYPOTENSION [None]
  - SUPRAVENTRICULAR TACHYCARDIA [None]
